FAERS Safety Report 8831459 (Version 2)
Quarter: 2015Q3

REPORT INFORMATION
  Report Type: Report from Study
  Country: US (occurrence: US)
  Receive Date: 20121009
  Receipt Date: 20150805
  Transmission Date: 20151125
  Serious: Yes (Other)
  Sender: FDA-Public Use
  Company Number: US-ROCHE-1134612

PATIENT
  Sex: Female

DRUGS (8)
  1. FERROUS SULFATE [Concomitant]
     Active Substance: FERROUS SULFATE\FERROUS SULFATE, DRIED
     Route: 065
  2. RITUXAN [Suspect]
     Active Substance: RITUXIMAB
     Dosage: 2ND COURSE
     Route: 042
     Dates: start: 20011205
  3. RITUXAN [Suspect]
     Active Substance: RITUXIMAB
     Indication: AUTOIMMUNE HAEMOLYTIC ANAEMIA
     Dosage: 1ST COUSE
     Route: 042
     Dates: start: 20010509
  4. RITUXAN [Suspect]
     Active Substance: RITUXIMAB
     Indication: PARAPROTEINAEMIA
     Dosage: 2ND COURSE
     Route: 042
     Dates: start: 20010821
  5. FOLIC ACID. [Concomitant]
     Active Substance: FOLIC ACID
     Route: 065
  6. IMURAN [Concomitant]
     Active Substance: AZATHIOPRINE
     Route: 065
  7. PEPCID [Concomitant]
     Active Substance: FAMOTIDINE
     Route: 065
  8. PREDNISOLONE. [Concomitant]
     Active Substance: PREDNISOLONE
     Route: 065

REACTIONS (4)
  - Off label use [Unknown]
  - Asthenia [Unknown]
  - Anaemia [Unknown]
  - Oedema [Unknown]
